FAERS Safety Report 25223767 (Version 1)
Quarter: 2025Q2

REPORT INFORMATION
  Report Type: Spontaneous
  Country: PK (occurrence: PK)
  Receive Date: 20250422
  Receipt Date: 20250422
  Transmission Date: 20250716
  Serious: Yes (Hospitalization, Other)
  Sender: RANBAXY
  Company Number: PK-SUN PHARMACEUTICAL INDUSTRIES LTD-2025R1-504424

PATIENT
  Age: 2 Year
  Sex: Male

DRUGS (2)
  1. FOLIC ACID [Suspect]
     Active Substance: FOLIC ACID
     Indication: Anaemia megaloblastic
     Route: 065
  2. METHYLCOBALAMIN [Suspect]
     Active Substance: METHYLCOBALAMIN
     Indication: Anaemia megaloblastic
     Route: 065

REACTIONS (4)
  - Pancytopenia [Recovered/Resolved]
  - Infection [Unknown]
  - Diarrhoea [Unknown]
  - Mean cell volume increased [Recovered/Resolved]
